FAERS Safety Report 5229719-X (Version None)
Quarter: 2007Q1

REPORT INFORMATION
  Report Type: 
  Country: None (occurrence: None)
  Receive Date: 20070206
  Receipt Date: 20070124
  Transmission Date: 20070707
  Serious: Yes (Death, Disabling)
  Sender: FDA-Public Use
  Company Number: JP-PFIZER INC-2007006638

PATIENT
  Sex: Male
  Weight: 60 kg

DRUGS (11)
  1. ZYVOX [Suspect]
     Indication: PNEUMONIA BACTERIAL
     Route: 042
     Dates: start: 20050927, end: 20050930
  2. VANCOMYCIN HYDROCHLORIDE [Concomitant]
     Route: 042
     Dates: start: 20050906, end: 20050927
  3. AZACTAM [Concomitant]
     Route: 042
     Dates: start: 20050905, end: 20050909
  4. TAZOCIN [Concomitant]
     Route: 042
     Dates: start: 20050915, end: 20050918
  5. PAZUFLOXACIN [Concomitant]
     Route: 042
     Dates: start: 20050915, end: 20050925
  6. PENMALIN [Concomitant]
     Route: 042
     Dates: start: 20050925
  7. MICAFUNGIN [Concomitant]
     Route: 042
     Dates: start: 20050924
  8. MEROPENEM [Concomitant]
     Route: 042
     Dates: start: 20050928
  9. NOREPINEPHRINE BITARTRATE [Concomitant]
     Route: 042
     Dates: start: 20050915
  10. MEYLON [Concomitant]
     Route: 042
     Dates: start: 20050915
  11. MIDAZOLAM HCL [Concomitant]
     Route: 042
     Dates: start: 20050906

REACTIONS (8)
  - ALANINE AMINOTRANSFERASE INCREASED [None]
  - ASPARTATE AMINOTRANSFERASE INCREASED [None]
  - BONE MARROW FAILURE [None]
  - LIVER DISORDER [None]
  - MULTI-ORGAN FAILURE [None]
  - PLATELET COUNT DECREASED [None]
  - RED BLOOD CELL COUNT DECREASED [None]
  - RENAL FAILURE ACUTE [None]
